FAERS Safety Report 11773496 (Version 2)
Quarter: 2015Q4

REPORT INFORMATION
  Report Type: Report from Study
  Country: US (occurrence: US)
  Receive Date: 20151124
  Receipt Date: 20151214
  Transmission Date: 20160304
  Serious: Yes (Other)
  Sender: FDA-Public Use
  Company Number: US-GILEAD-2015-0183644

PATIENT
  Age: 73 Year
  Sex: Male

DRUGS (2)
  1. RANOLAZINE [Suspect]
     Active Substance: RANOLAZINE
     Dosage: 500 MG, QD
     Route: 048
     Dates: start: 201508
  2. RANOLAZINE [Suspect]
     Active Substance: RANOLAZINE
     Indication: ANGINA PECTORIS
     Dosage: 500 MG, (1 TABLET BID)
     Route: 048

REACTIONS (2)
  - Angina pectoris [Unknown]
  - Off label use [Unknown]

NARRATIVE: CASE EVENT DATE: 201508
